FAERS Safety Report 19910994 (Version 1)
Quarter: 2021Q4

REPORT INFORMATION
  Report Type: Spontaneous
  Country: US (occurrence: US)
  Receive Date: 20211004
  Receipt Date: 20211004
  Transmission Date: 20220303
  Serious: No
  Sender: FDA-Public Use
  Company Number: US-SA-SAC20210928001079

PATIENT
  Sex: Female

DRUGS (11)
  1. DUPIXENT [Suspect]
     Active Substance: DUPILUMAB
     Indication: Dermatitis allergic
     Route: 058
  2. CLOBETASOL [Suspect]
     Active Substance: CLOBETASOL
  3. TRIAMCINOLONE [Suspect]
     Active Substance: TRIAMCINOLONE
  4. OTEZLA [Concomitant]
     Active Substance: APREMILAST
  5. AMLODIPINE BESYLATE [Concomitant]
     Active Substance: AMLODIPINE BESYLATE
  6. ROSUVASTATIN CALCIUM [Concomitant]
     Active Substance: ROSUVASTATIN CALCIUM
  7. SYNTHROID [Concomitant]
     Active Substance: LEVOTHYROXINE SODIUM
  8. LIDOCAINE [Concomitant]
     Active Substance: LIDOCAINE
  9. CLOBETASOL PROPIONATE [Concomitant]
     Active Substance: CLOBETASOL PROPIONATE
  10. EPINEPHRINE [Concomitant]
     Active Substance: EPINEPHRINE
  11. PFIZER-BIONTECH COVID-19 VACCINE [Concomitant]
     Active Substance: TOZINAMERAN

REACTIONS (3)
  - Pruritus [Unknown]
  - Treatment failure [Unknown]
  - Product use in unapproved indication [Unknown]
